FAERS Safety Report 5154635-1 (Version None)
Quarter: 2006Q4

REPORT INFORMATION
  Report Type: 
  Country: None (occurrence: None)
  Receive Date: 20061113
  Receipt Date: 20061101
  Transmission Date: 20070319
  Serious: Yes (Hospitalization)
  Sender: FDA-Public Use
  Company Number: 2006129449

PATIENT
  Age: 60 Year
  Sex: Male
  Weight: 51.4 kg

DRUGS (10)
  1. ALPRAZOLAM [Suspect]
     Indication: SUICIDE ATTEMPT
     Dosage: ORAL
     Route: 048
     Dates: start: 20061019, end: 20061019
  2. AMOBAN (ZOPICLONE) [Suspect]
     Indication: SUICIDE ATTEMPT
     Dosage: ORAL
     Route: 048
     Dates: start: 20061019, end: 20061019
  3. URSO 250 [Concomitant]
  4. TAMBOCOR [Concomitant]
  5. METHYCOBAL (MECOBALAMIN) [Concomitant]
  6. EPADEL (ETHYL ICOSAPENTATE) [Concomitant]
  7. SOLON (SOFALCONE) [Concomitant]
  8. ACTOS [Concomitant]
  9. STRONG NEO-MINOPHAGEN C (AMINOACETIC ACID, CYSTEINE, GLYCYRRHIZIC ACID [Concomitant]
  10. GLUTATHIONE [Concomitant]

REACTIONS (12)
  - ALANINE AMINOTRANSFERASE INCREASED [None]
  - ASPARTATE AMINOTRANSFERASE INCREASED [None]
  - BLOOD CHOLINESTERASE DECREASED [None]
  - CONTUSION [None]
  - FAECAL INCONTINENCE [None]
  - FALL [None]
  - GAMMA-GLUTAMYLTRANSFERASE INCREASED [None]
  - INTENTIONAL SELF-INJURY [None]
  - LACERATION [None]
  - MULTIPLE DRUG OVERDOSE INTENTIONAL [None]
  - SUICIDE ATTEMPT [None]
  - URINARY INCONTINENCE [None]
